FAERS Safety Report 5710869-6 (Version None)
Quarter: 2008Q2

REPORT INFORMATION
  Report Type: 
  Country: None (occurrence: None)
  Receive Date: 20080421
  Receipt Date: 20080410
  Transmission Date: 20081010
  Serious: Yes (Life-Threatening)
  Sender: FDA-Public Use
  Company Number: GB-TEVA-169985ISR

PATIENT
  Age: 72 Year
  Sex: Male

DRUGS (1)
  1. VERAPAMIL [Suspect]
     Indication: ATRIAL FIBRILLATION
     Route: 048
     Dates: start: 20080328, end: 20080331

REACTIONS (1)
  - ANGIOEDEMA [None]
